FAERS Safety Report 6230854-8 (Version None)
Quarter: 2009Q2

REPORT INFORMATION
  Report Type: 
  Country: None (occurrence: None)
  Receive Date: 20090616
  Receipt Date: 20090610
  Transmission Date: 20091009
  Serious: Yes (Hospitalization)
  Sender: FDA-Public Use
  Company Number: US-JNJFOC-20070603965

PATIENT
  Sex: Female
  Weight: 59.42 kg

DRUGS (3)
  1. ORTHO EVRA [Suspect]
     Route: 062
  2. ORTHO EVRA [Suspect]
     Indication: CONTRACEPTION
     Route: 062
  3. IBUPROFEN [Concomitant]

REACTIONS (3)
  - DEEP VEIN THROMBOSIS [None]
  - OFF LABEL USE [None]
  - PULMONARY EMBOLISM [None]
